FAERS Safety Report 9127041 (Version 1)
Quarter: 2013Q1

REPORT INFORMATION
  Report Type: Spontaneous
  Country: US (occurrence: US)
  Receive Date: 20130228
  Receipt Date: 20130228
  Transmission Date: 20140127
  Serious: Yes (Death)
  Sender: FDA-Public Use
  Company Number: PHEH2013US004676

PATIENT
  Sex: Male

DRUGS (8)
  1. GLEEVEC [Suspect]
     Indication: MYELOID LEUKAEMIA
     Dosage: 400 UKN, DAILY
     Route: 048
     Dates: start: 200602, end: 201302
  2. ASPIRIN [Concomitant]
  3. LISINOPRIL [Concomitant]
  4. FUROSEMIDE [Concomitant]
  5. NIASPAN [Concomitant]
  6. METOPROLOL [Concomitant]
  7. CLOPIDOGREL [Concomitant]
  8. KLOR-CON [Concomitant]

REACTIONS (1)
  - Death [Fatal]
